FAERS Safety Report 9645676 (Version 3)
Quarter: 2014Q2

REPORT INFORMATION
  Report Type: Spontaneous
  Country: CN (occurrence: CN)
  Receive Date: 20131025
  Receipt Date: 20140513
  Transmission Date: 20141212
  Serious: Yes (Death, Hospitalization)
  Sender: FDA-Public Use
  Company Number: PHHY2013CN120686

PATIENT
  Age: 83 Year
  Sex: Female

DRUGS (4)
  1. ACLASTA [Suspect]
     Indication: OSTEOPOROSIS
     Dosage: 5MG/100ML (ONE IN YEAR)
     Route: 042
     Dates: start: 20131001
  2. CEFOTIAM//CEFOTIAM HYDROCHLORIDE [Concomitant]
     Dosage: UNK
  3. AESCINE [Concomitant]
     Dosage: UNK
  4. HEPARIN [Concomitant]
     Dosage: UNK

REACTIONS (7)
  - Respiratory failure [Fatal]
  - Circulatory collapse [Fatal]
  - Atrial fibrillation [Unknown]
  - Palpitations [Unknown]
  - Heart rate increased [Unknown]
  - Chest discomfort [Unknown]
  - Pyrexia [Unknown]
